FAERS Safety Report 7987301 (Version 3)
Quarter: 2018Q3

REPORT INFORMATION
  Report Type: Spontaneous
  Country: FR (occurrence: FR)
  Receive Date: 20110613
  Receipt Date: 20180920
  Transmission Date: 20181010
  Serious: Yes (Death, Hospitalization, Other)
  Sender: FDA-Public Use
  Company Number: FR-PFIZER INC-2011123075

PATIENT
  Age: 83 Year
  Sex: Female

DRUGS (10)
  1. INEXIUM [Concomitant]
     Active Substance: ESOMEPRAZOLE
     Dosage: UNK
     Dates: end: 20110526
  2. IMOVANE [Concomitant]
     Active Substance: ZOPICLONE
     Dosage: UNK
     Dates: end: 20110526
  3. DOLIPRANE [Concomitant]
     Active Substance: ACETAMINOPHEN
     Dosage: UNK
     Dates: end: 20110526
  4. MOPRAL [Concomitant]
     Active Substance: OMEPRAZOLE
     Dosage: 20
  5. LEVOTHYROX [Concomitant]
     Active Substance: LEVOTHYROXINE
     Dosage: 100
  6. AUGMENTIN [Suspect]
     Active Substance: AMOXICILLIN\CLAVULANATE POTASSIUM
     Dosage: 1 G, 3X/DAY
     Dates: start: 20110523, end: 20110526
  7. LASILIX [Suspect]
     Active Substance: FUROSEMIDE
     Dosage: UNK
     Dates: end: 20110526
  8. SOLU?MEDROL [Suspect]
     Active Substance: METHYLPREDNISOLONE SODIUM SUCCINATE
     Dosage: 40 MG, 1X/DAY
     Route: 042
     Dates: start: 20110525, end: 20110526
  9. GLUCOPHAGE [Concomitant]
     Active Substance: METFORMIN HYDROCHLORIDE
     Dosage: 1000
     Dates: end: 20110526
  10. DEROXAT [Concomitant]
     Active Substance: PAROXETINE HYDROCHLORIDE
     Dosage: 20
     Dates: end: 20110526

REACTIONS (8)
  - Cardiac failure [Unknown]
  - Respiratory disorder [Fatal]
  - Hepatocellular injury [Recovered/Resolved]
  - Atrial fibrillation [Unknown]
  - Liver disorder [Unknown]
  - Cardiac failure [Unknown]
  - Sepsis [Unknown]
  - Arrhythmia [Unknown]

NARRATIVE: CASE EVENT DATE: 201105
